FAERS Safety Report 8086320-0 (Version None)
Quarter: 2012Q1

REPORT INFORMATION
  Report Type: 
  Country: None (occurrence: None)
  Receive Date: 20120128
  Receipt Date: 20110428
  Transmission Date: 20120608
  Serious: No
  Sender: FDA-Public Use
  Company Number: US-ABBOTT-11P-163-0722603-00

PATIENT
  Sex: Female

DRUGS (3)
  1. HUMIRA [Suspect]
     Indication: PRODUCT USED FOR UNKNOWN INDICATION
     Dates: start: 20101223, end: 20101223
  2. HUMIRA [Suspect]
     Dates: start: 20110106, end: 20110106
  3. HUMIRA [Suspect]
     Dates: start: 20110120

REACTIONS (1)
  - INJECTION SITE PAIN [None]
